FAERS Safety Report 25316899 (Version 1)
Quarter: 2025Q2

REPORT INFORMATION
  Report Type: Spontaneous
  Country: US (occurrence: US)
  Receive Date: 20250515
  Receipt Date: 20250515
  Transmission Date: 20250717
  Serious: Yes (Hospitalization)
  Sender: GRIFOLS
  Company Number: US-IGSA-BIG0035138

PATIENT
  Sex: Female

DRUGS (1)
  1. VISTASEAL [Suspect]
     Active Substance: FIBRINOGEN HUMAN\HUMAN THROMBIN
     Indication: Hysterectomy
     Route: 065
     Dates: start: 20250501

REACTIONS (2)
  - Abscess [Recovering/Resolving]
  - Pelvic fluid collection [Recovering/Resolving]

NARRATIVE: CASE EVENT DATE: 20250507
